FAERS Safety Report 4788680-2 (Version None)
Quarter: 2005Q3

REPORT INFORMATION
  Report Type: 
  Country: None (occurrence: None)
  Receive Date: 20050920
  Receipt Date: 20050719
  Transmission Date: 20060218
  Serious: Yes (Hospitalization)
  Sender: FDA-Public Use
  Company Number: 2005006495

PATIENT
  Sex: Male

DRUGS (1)
  1. NAVANE [Suspect]
     Indication: ILL-DEFINED DISORDER
     Dosage: 10 MG

REACTIONS (3)
  - ANAEMIA [None]
  - LEUKOPENIA [None]
  - PSYCHOTIC DISORDER [None]
